FAERS Safety Report 13512830 (Version 1)
Quarter: 2017Q2

REPORT INFORMATION
  Report Type: Spontaneous
  Country: FR (occurrence: FR)
  Receive Date: 20170504
  Receipt Date: 20170504
  Transmission Date: 20170830
  Serious: Yes (Hospitalization, Other)
  Sender: FDA-Public Use
  Company Number: FR-OTSUKA-2017_009808

PATIENT
  Age: 34 Year
  Sex: Female

DRUGS (1)
  1. JINARC [Suspect]
     Active Substance: TOLVAPTAN
     Indication: CONGENITAL CYSTIC KIDNEY DISEASE
     Dosage: UNK
     Route: 048
     Dates: start: 201701

REACTIONS (5)
  - Dehydration [Unknown]
  - Nocturia [Unknown]
  - Polyuria [Unknown]
  - Abdominal pain [Unknown]
  - Thirst [Unknown]
